FAERS Safety Report 16402789 (Version 2)
Quarter: 2019Q3

REPORT INFORMATION
  Report Type: Spontaneous
  Country: US (occurrence: US)
  Receive Date: 20190607
  Receipt Date: 20190827
  Transmission Date: 20191004
  Serious: No
  Sender: FDA-Public Use
  Company Number: US-PHARMING-PHAUS2019000371

PATIENT

DRUGS (2)
  1. RUCONEST [Suspect]
     Active Substance: HUMAN C1-ESTERASE INHIBITOR
     Dosage: 3150 IU, AS NEEDED
     Route: 042
     Dates: start: 20170919
  2. RUCONEST [Suspect]
     Active Substance: HUMAN C1-ESTERASE INHIBITOR
     Indication: HEREDITARY ANGIOEDEMA
     Dosage: 3150 IU, AS NEEDED
     Route: 042
     Dates: start: 20170919

REACTIONS (2)
  - Underdose [Unknown]
  - Malaise [Unknown]

NARRATIVE: CASE EVENT DATE: 201905
